FAERS Safety Report 14022040 (Version 3)
Quarter: 2017Q4

REPORT INFORMATION
  Report Type: Report from Study
  Country: US (occurrence: US)
  Receive Date: 20170928
  Receipt Date: 20171109
  Transmission Date: 20180321
  Serious: Yes (Hospitalization, Other)
  Sender: FDA-Public Use
  Company Number: PHHO2017US013120

PATIENT
  Age: 74 Year
  Sex: Male
  Weight: 94.8 kg

DRUGS (12)
  1. IBUPROFEN. [Concomitant]
     Active Substance: IBUPROFEN
     Indication: PRODUCT USED FOR UNKNOWN INDICATION
     Dosage: 200 MG, Q6H (AS NEEDED)
     Route: 048
  2. ACETAMINOPHEN. [Concomitant]
     Active Substance: ACETAMINOPHEN
     Indication: PRODUCT USED FOR UNKNOWN INDICATION
     Dosage: 1-2 TABLETS EVERY 4 HOURS AS NEEDED
     Route: 048
  3. SENNA [Concomitant]
     Active Substance: SENNA LEAF\SENNOSIDES\SENNOSIDES A AND B
     Indication: CONSTIPATION
     Dosage: 17.2 MG, BID (AS NEEDED)
     Route: 048
  4. CIPROFLOXACIN. [Concomitant]
     Active Substance: CIPROFLOXACIN
     Indication: PRODUCT USED FOR UNKNOWN INDICATION
     Dosage: 750 MG, BID FOR 14 DAYS
     Route: 048
  5. GLYBURIDE. [Concomitant]
     Active Substance: GLYBURIDE
     Indication: PRODUCT USED FOR UNKNOWN INDICATION
     Dosage: 5 MG, QD AT BEDTIME
     Route: 048
  6. PIOGLITAZONE. [Concomitant]
     Active Substance: PIOGLITAZONE
     Indication: PRODUCT USED FOR UNKNOWN INDICATION
     Dosage: 30 MG, QD
     Route: 048
  7. GSK2118436 [Suspect]
     Active Substance: DABRAFENIB
     Indication: METASTATIC MALIGNANT MELANOMA
     Dosage: 4800 MG, UNK
     Route: 048
     Dates: start: 20170622
  8. ONDANSETRON [Concomitant]
     Active Substance: ONDANSETRON
     Indication: NAUSEA
     Dosage: 4 MG, Q8H
     Route: 048
  9. TAMSULOSIN [Concomitant]
     Active Substance: TAMSULOSIN
     Indication: PRODUCT USED FOR UNKNOWN INDICATION
     Dosage: 0.4 MG, QD
     Route: 048
  10. DOCUSATE [Concomitant]
     Active Substance: DOCUSATE
     Indication: CONSTIPATION
     Dosage: 100 MG, BID AS NEEDED
     Route: 048
  11. HUMALOG [Concomitant]
     Active Substance: INSULIN LISPRO
     Indication: PRODUCT USED FOR UNKNOWN INDICATION
     Route: 058
  12. TRAMETINIB [Suspect]
     Active Substance: TRAMETINIB
     Indication: METASTATIC MALIGNANT MELANOMA
     Dosage: 32 MG, UNK
     Route: 048
     Dates: start: 20170622

REACTIONS (9)
  - Lung infection [Recovered/Resolved]
  - Klebsiella bacteraemia [Recovered/Resolved]
  - Atrial fibrillation [Recovered/Resolved]
  - Upper respiratory tract infection [Recovered/Resolved]
  - Dyspnoea [Recovered/Resolved]
  - Blood bilirubin increased [Recovered/Resolved]
  - White blood cell count decreased [Recovered/Resolved]
  - Hypotension [Recovered/Resolved]
  - Febrile neutropenia [Recovered/Resolved]

NARRATIVE: CASE EVENT DATE: 20170627
